FAERS Safety Report 9367513 (Version 1)
Quarter: 2013Q2

REPORT INFORMATION
  Report Type: Spontaneous
  Country: US (occurrence: US)
  Receive Date: 20130625
  Receipt Date: 20130625
  Transmission Date: 20140414
  Serious: No
  Sender: FDA-Public Use
  Company Number: US-ASTELLAS-2012US006950

PATIENT
  Sex: Female

DRUGS (2)
  1. VESICARE [Suspect]
     Indication: HYPERTONIC BLADDER
     Dosage: 5 MG, UNKNOWN/D
     Route: 048
     Dates: start: 2012
  2. MILK OF MAGNESIA [Suspect]
     Indication: CONSTIPATION
     Dosage: 2 TABLESPOONS, TOTAL DOSE
     Route: 048

REACTIONS (2)
  - Diarrhoea [Unknown]
  - Constipation [Unknown]
